FAERS Safety Report 23073292 (Version 1)
Quarter: 2023Q4

REPORT INFORMATION
  Report Type: Spontaneous
  Country: US (occurrence: US)
  Receive Date: 20231017
  Receipt Date: 20231017
  Transmission Date: 20240110
  Serious: No
  Sender: FDA-Public Use
  Company Number: US-JNJFOC-20231014206

PATIENT
  Age: 79 Year
  Sex: Male
  Weight: 104 kg

DRUGS (2)
  1. FAMOTIDINE [Suspect]
     Active Substance: FAMOTIDINE
     Indication: Viral labyrinthitis
     Route: 048
     Dates: start: 20230903, end: 20230907
  2. ACETAMINOPHEN [Suspect]
     Active Substance: ACETAMINOPHEN
     Indication: Viral labyrinthitis
     Dosage: PRN
     Route: 048
     Dates: start: 20230903, end: 20230903

REACTIONS (1)
  - Off label use [Unknown]
